FAERS Safety Report 4690852-2 (Version None)
Quarter: 2005Q2

REPORT INFORMATION
  Report Type: 
  Country: None (occurrence: None)
  Receive Date: 20050614
  Receipt Date: 20050614
  Transmission Date: 20051028
  Serious: Yes (Hospitalization)
  Sender: FDA-Public Use
  Company Number: None

PATIENT
  Age: 11 Year
  Sex: Male
  Weight: 50 kg

DRUGS (4)
  1. DESFEROXAMINE 00074-2337-25 [Suspect]
     Indication: APLASTIC ANAEMIA
     Dosage: 2 GM SQ TIW
     Route: 058
     Dates: start: 20040922, end: 20050101
  2. DESFEROXAMINE 00074-2337-25 [Suspect]
  3. DESFEROXAMINE 00074-2337-25 [Suspect]
  4. VANCOMYCIN [Concomitant]

REACTIONS (1)
  - INJECTION SITE CELLULITIS [None]
